FAERS Safety Report 4579588-6 (Version None)
Quarter: 2005Q1

REPORT INFORMATION
  Report Type: 
  Country: None (occurrence: None)
  Receive Date: 20050209
  Receipt Date: 20050209
  Transmission Date: 20050727
  Serious: Yes (Life-Threatening, Hospitalization)
  Sender: FDA-Public Use
  Company Number: None

PATIENT
  Age: 90 Year
  Sex: Female
  Weight: 72.5755 kg

DRUGS (2)
  1. LOTREL [Suspect]
     Indication: BLOOD PRESSURE
  2. TRIAMTERENE AND HYDROCHLOROTHIAZIDE [Suspect]
     Indication: BLOOD PRESSURE

REACTIONS (4)
  - BLOOD CHLORIDE INCREASED [None]
  - BLOOD POTASSIUM INCREASED [None]
  - ERYTHEMA [None]
  - OEDEMA PERIPHERAL [None]
